FAERS Safety Report 7638566-0 (Version None)
Quarter: 2011Q3

REPORT INFORMATION
  Report Type: 
  Country: None (occurrence: None)
  Receive Date: 20110720
  Receipt Date: 20110705
  Transmission Date: 20111222
  Serious: Yes (Hospitalization)
  Sender: FDA-Public Use
  Company Number: 2011MA008598

PATIENT
  Age: 41 Year
  Sex: Female

DRUGS (3)
  1. BACLOFEN [Suspect]
     Indication: BACK PAIN
     Dosage: 10 MG; PO
     Route: 048
     Dates: start: 20110620, end: 20110620
  2. ACETAMINOPHEN AND CODEINE PHOSPHATE [Concomitant]
  3. NAPROXEN [Suspect]
     Indication: BACK PAIN
     Dosage: 500 MG;	;ORAL
     Route: 048
     Dates: start: 20110620, end: 20110620

REACTIONS (5)
  - LIP SWELLING [None]
  - MALAISE [None]
  - RASH [None]
  - CHEILITIS [None]
  - OCULAR HYPERAEMIA [None]
